FAERS Safety Report 9923742 (Version 1)
Quarter: 2014Q1

REPORT INFORMATION
  Report Type: Spontaneous
  Country: US (occurrence: US)
  Receive Date: 20140225
  Receipt Date: 20140225
  Transmission Date: 20141002
  Serious: No
  Sender: FDA-Public Use
  Company Number: US-AMGEN-USASP2014000261

PATIENT
  Age: 51 Year
  Sex: Female
  Weight: 78.91 kg

DRUGS (4)
  1. ENBREL [Suspect]
     Indication: RHEUMATOID ARTHRITIS
     Dosage: 50 MG, QWK
     Route: 058
     Dates: start: 201206
  2. METHOTREXATE [Concomitant]
     Dosage: UNK
  3. ADVIL                              /00044201/ [Concomitant]
     Dosage: UNK
  4. DAYQUIL [Concomitant]
     Dosage: UNK, AS NEEDED

REACTIONS (1)
  - Therapeutic response decreased [Unknown]
